FAERS Safety Report 7668699-4 (Version None)
Quarter: 2011Q3

REPORT INFORMATION
  Report Type: 
  Country: None (occurrence: None)
  Receive Date: 20110808
  Receipt Date: 20110729
  Transmission Date: 20111222
  Serious: Yes (Life-Threatening)
  Sender: FDA-Public Use
  Company Number: GB-AMGEN-GBRSP2011038710

PATIENT
  Age: 72 Year
  Sex: Female
  Weight: 80 kg

DRUGS (8)
  1. ARANESP [Suspect]
     Indication: NEPHROGENIC ANAEMIA
     Dosage: 20 A?G, Q2WK
     Route: 058
     Dates: start: 20100217
  2. GLICLAZIDE [Concomitant]
  3. PIOGLITAZONE HYDROCHLORIDE [Concomitant]
  4. ATENOLOL [Concomitant]
  5. ASPIRIN [Concomitant]
  6. CANDESARTAN CILEXETIL [Concomitant]
  7. ATORVASTATIN [Concomitant]
  8. FELODIPINE [Concomitant]

REACTIONS (1)
  - ANGIOSARCOMA [None]
